FAERS Safety Report 7629914-6 (Version None)
Quarter: 2011Q3

REPORT INFORMATION
  Report Type: 
  Country: None (occurrence: None)
  Receive Date: 20110722
  Receipt Date: 20110708
  Transmission Date: 20111222
  Serious: Yes (Death)
  Sender: FDA-Public Use
  Company Number: GB-WATSON-2011-09996

PATIENT
  Age: 61 Year
  Sex: Male
  Weight: 61 kg

DRUGS (11)
  1. CISPLATIN [Concomitant]
     Indication: NEOPLASM MALIGNANT
     Dosage: 140 MG, UNKNOWN
     Route: 065
     Dates: start: 20100114, end: 20100114
  2. DEXAMETHASONE [Concomitant]
     Indication: NAUSEA
     Dosage: 2 MG, TID
     Route: 065
     Dates: start: 20100114, end: 20100117
  3. ONDANSERTRON HYDROCHLORIDE [Concomitant]
     Indication: VOMITING
  4. FLUOROURACIL [Concomitant]
     Indication: NEOPLASM MALIGNANT
     Dosage: 6800 MG, DAILY
     Route: 065
     Dates: start: 20100114, end: 20100118
  5. ONDANSERTRON HYDROCHLORIDE [Concomitant]
     Indication: NAUSEA
     Dosage: 8 MG, TID
     Route: 048
     Dates: start: 20100114, end: 20100115
  6. FENTANYL [Suspect]
     Indication: PRODUCT USED FOR UNKNOWN INDICATION
     Dosage: 37 UG, 1/3 DAYS
     Route: 061
     Dates: start: 20091020
  7. CHEMOTHERAPY [Concomitant]
     Indication: SKIN CANCER
     Route: 065
  8. ZOPICLONE [Concomitant]
     Indication: SLEEP DISORDER
     Dosage: 15 MG, DAILY
     Route: 065
     Dates: start: 20091231
  9. APREPITANT [Suspect]
     Indication: ANTIEMETIC SUPPORTIVE CARE
     Dosage: 80 MG, DAILY
     Route: 048
     Dates: start: 20100115, end: 20100116
  10. APREPITANT [Suspect]
     Dosage: 125 MG, DAILY
     Route: 048
     Dates: start: 20100114, end: 20100114
  11. DOMPERIDONE [Concomitant]
     Indication: NAUSEA
     Dosage: UNK
     Route: 065
     Dates: start: 20100114

REACTIONS (3)
  - DEATH [None]
  - TOXICITY TO VARIOUS AGENTS [None]
  - DRUG INTERACTION [None]
